FAERS Safety Report 9413216 (Version 1)
Quarter: 2013Q3

REPORT INFORMATION
  Report Type: Spontaneous
  Country: US (occurrence: None)
  Receive Date: 20130717
  Receipt Date: 20130717
  Transmission Date: 20140515
  Serious: Yes (Death)
  Sender: FDA-Public Use
  Company Number: 20130039

PATIENT
  Age: 34 Year
  Sex: Male

DRUGS (6)
  1. SUBSYS [Suspect]
     Indication: CHEST PAIN
  2. OXYCODONE [Concomitant]
  3. XANAX [Concomitant]
  4. METHADONE [Concomitant]
  5. LISONOPRIL [Concomitant]
  6. ASPIRIN [Concomitant]

REACTIONS (1)
  - Death [None]
